FAERS Safety Report 22900995 (Version 2)
Quarter: 2023Q4

REPORT INFORMATION
  Report Type: Report from Study
  Country: US (occurrence: US)
  Receive Date: 20230904
  Receipt Date: 20231210
  Transmission Date: 20240110
  Serious: No
  Sender: FDA-Public Use
  Company Number: US-GLAXOSMITHKLINE-US2023AMR119853

PATIENT
  Age: 52 Year
  Sex: Female

DRUGS (2)
  1. NIRAPARIB [Suspect]
     Active Substance: NIRAPARIB
     Indication: Ovarian cancer
     Dosage: 200 MG, QD
     Route: 048
     Dates: start: 20230803
  2. NIRAPARIB [Suspect]
     Active Substance: NIRAPARIB
     Indication: Ovarian cancer
     Dosage: 200 MG, QD
     Route: 048

REACTIONS (5)
  - Nausea [Not Recovered/Not Resolved]
  - Dyspepsia [Unknown]
  - Oral discomfort [Not Recovered/Not Resolved]
  - Vomiting [Unknown]
  - Burning sensation [Unknown]

NARRATIVE: CASE EVENT DATE: 20230801
